FAERS Safety Report 23728052 (Version 2)
Quarter: 2024Q2

REPORT INFORMATION
  Report Type: Report from Study
  Country: US (occurrence: US)
  Receive Date: 20240410
  Receipt Date: 20240426
  Transmission Date: 20240716
  Serious: Yes (Other)
  Sender: FDA-Public Use
  Company Number: US-Merck Healthcare KGaA-2024015993

PATIENT
  Sex: Female

DRUGS (2)
  1. MAVENCLAD [Suspect]
     Active Substance: CLADRIBINE
     Indication: Multiple sclerosis
     Dosage: YEAR ONE MONTH ONE THERAPY.
     Route: 048
     Dates: start: 20240229
  2. MAVENCLAD [Suspect]
     Active Substance: CLADRIBINE

REACTIONS (5)
  - Lymphoma [Unknown]
  - Lymphadenopathy [Not Recovered/Not Resolved]
  - Lymphadenitis bacterial [Unknown]
  - Perioral dermatitis [Recovering/Resolving]
  - Dermatitis [Recovering/Resolving]
